FAERS Safety Report 16681316 (Version 1)
Quarter: 2019Q3

REPORT INFORMATION
  Report Type: Spontaneous
  Country: DE (occurrence: DE)
  Receive Date: 20190808
  Receipt Date: 20190808
  Transmission Date: 20191004
  Serious: Yes (Hospitalization)
  Sender: FDA-Public Use
  Company Number: DE-ACCORD-150518

PATIENT
  Age: 63 Year
  Sex: Female

DRUGS (17)
  1. MIRTAZAPINE. [Concomitant]
     Active Substance: MIRTAZAPINE
     Dosage: 30 MG, 0-0-0.5-0, STRENGTH: 30 MG
  2. DEXAMETHASONE. [Concomitant]
     Active Substance: DEXAMETHASONE
     Dosage: 4 MG, 1-0-0-0
  3. LEVOTHYROXINE. [Concomitant]
     Active Substance: LEVOTHYROXINE
     Dosage: 50 MICROG, 1-0-0-0
  4. ATORVASTATIN [Concomitant]
     Active Substance: ATORVASTATIN
     Dosage: 40 MG, 0-0-1-0
  5. SATIVEX [Concomitant]
     Active Substance: NABIXIMOLS
     Dosage: NK MG, 1-0-1-0
  6. EFFENTORA [Concomitant]
     Active Substance: FENTANYL CITRATE
     Dosage: 100 MICROG, REQUIREMENT
     Route: 060
  7. TAVOR [Concomitant]
     Dosage: 1 MG, REQUIREMENT
     Route: 048
  8. PANTOPRAZOLE [Concomitant]
     Active Substance: PANTOPRAZOLE
     Dosage: 40 MG, 1-0-0-0
  9. PREGABALIN. [Concomitant]
     Active Substance: PREGABALIN
     Dosage: 50 MG, 1-0-1-0
  10. METOPROLOL. [Concomitant]
     Active Substance: METOPROLOL
     Dosage: 47.5 MG, 1-0-1-0
  11. METAMIZOLE SODIUM [Concomitant]
     Active Substance: METAMIZOLE SODIUM
     Dosage: NK MG, 30-30-30-30
  12. PALLADON [Concomitant]
     Active Substance: HYDROMORPHONE
     Dosage: 6 MG, 1-0-1-0
  13. PARACETAMOL [Concomitant]
     Active Substance: ACETAMINOPHEN
     Dosage: 1000 MG, 1-1-1-1
  14. ONDANSETRON [Concomitant]
     Active Substance: ONDANSETRON
     Dosage: 8 MG, 1-0-1-0
  15. CISPLATIN. [Suspect]
     Active Substance: CISPLATIN
     Indication: PRODUCT USED FOR UNKNOWN INDICATION
     Dosage: NK MG, NK
     Dates: end: 201709
  16. VINORELBINE [Suspect]
     Active Substance: VINORELBINE TARTRATE
     Indication: PRODUCT USED FOR UNKNOWN INDICATION
     Dosage: NK MG, NK
     Dates: end: 201709
  17. BERODUAL [Concomitant]
     Active Substance: FENOTEROL HYDROBROMIDE\IPRATROPIUM BROMIDE
     Dosage: NK MG, 1-0-1-0

REACTIONS (3)
  - Headache [Unknown]
  - General physical health deterioration [Unknown]
  - Dysarthria [Unknown]
